FAERS Safety Report 7846109 (Version 3)
Quarter: 2012Q4

REPORT INFORMATION
  Report Type: 
  Country: JP (occurrence: JP)
  Receive Date: 20110308
  Receipt Date: 20121206
  Transmission Date: 20130627
  Serious: Yes (Hospitalization)
  Sender: FDA-Public Use
  Company Number: JP-SANOFI-AVENTIS-2011SA013232

PATIENT
  Age: 69 Year
  Sex: Female
  Weight: 54 kg

DRUGS (2)
  1. DAONIL [Suspect]
     Indication: DIABETES MELLITUS
     Route: 048
     Dates: start: 1990
  2. PROPYLTHIOURACIL [Suspect]
     Indication: HYPERTHYROIDISM
     Route: 065
     Dates: start: 1975, end: 2010

REACTIONS (10)
  - Pulmonary alveolar haemorrhage [Recovered/Resolved]
  - Cough [Recovered/Resolved]
  - Haemoptysis [Recovered/Resolved]
  - Body temperature decreased [Recovered/Resolved]
  - C-reactive protein increased [Recovered/Resolved]
  - Inflammation [Recovered/Resolved]
  - Anaemia [Recovered/Resolved]
  - Hypoxia [Recovered/Resolved]
  - Dyspnoea exertional [Recovered/Resolved]
  - Bleeding time prolonged [Recovered/Resolved]
